FAERS Safety Report 15315144 (Version 1)
Quarter: 2018Q3

REPORT INFORMATION
  Report Type: Spontaneous
  Country: US (occurrence: US)
  Receive Date: 20180815
  Receipt Date: 20180815
  Transmission Date: 20181010
  Serious: Yes (Hospitalization)
  Sender: FDA-Public Use
  Company Number: None

PATIENT
  Age: 59 Year
  Sex: Female
  Weight: 93.5 kg

DRUGS (8)
  1. GABAPENTIN. [Concomitant]
     Active Substance: GABAPENTIN
  2. AURANOFIN 6 MG [Suspect]
     Active Substance: AURANOFIN
     Indication: OVARIAN CANCER
     Route: 048
     Dates: start: 20180606, end: 20180713
  3. GLYCOLAX [Concomitant]
     Active Substance: POLYETHYLENE GLYCOL 3350
  4. MAGA?OX [Concomitant]
  5. PERCOCET [Concomitant]
     Active Substance: ACETAMINOPHEN\OXYCODONE HYDROCHLORIDE
  6. SIROLIMUS 5 MG [Suspect]
     Active Substance: SIROLIMUS
     Indication: OVARIAN CANCER
     Route: 048
     Dates: start: 20180606, end: 20180713
  7. ATIVAN [Concomitant]
     Active Substance: LORAZEPAM
  8. XARELTO [Concomitant]
     Active Substance: RIVAROXABAN

REACTIONS (6)
  - Nausea [None]
  - Pleural effusion [None]
  - Vomiting [None]
  - Hypophagia [None]
  - Gastrointestinal wall thickening [None]
  - Retroperitoneal oedema [None]

NARRATIVE: CASE EVENT DATE: 20180713
